FAERS Safety Report 12067428 (Version 1)
Quarter: 2016Q1

REPORT INFORMATION
  Report Type: Spontaneous
  Country: None (occurrence: None)
  Receive Date: 20160210
  Receipt Date: 20160210
  Transmission Date: 20160526
  Serious: Yes (Other)
  Sender: FDA-Public Use
  Company Number: None

PATIENT
  Age: 55 Year
  Sex: Female
  Weight: 58.51 kg

DRUGS (2)
  1. CALCIUM W/VITAMIN D [Concomitant]
     Active Substance: CALCIUM\VITAMIN D
  2. FLUTICASONE 50 MCG + .06% [Suspect]
     Active Substance: FLUTICASONE\FLUTICASONE PROPIONATE
     Indication: RHINITIS ALLERGIC
     Dosage: 1 SPRAYDAY + E SPRAYS /DAY
     Route: 055
     Dates: start: 20100315, end: 20150715

REACTIONS (8)
  - Activities of daily living impaired [None]
  - Dry skin [None]
  - Pain [None]
  - Dermatitis contact [None]
  - Skin fissures [None]
  - Pruritus [None]
  - Skin disorder [None]
  - Drug ineffective [None]

NARRATIVE: CASE EVENT DATE: 20160209
